FAERS Safety Report 5666974-6 (Version None)
Quarter: 2008Q1

REPORT INFORMATION
  Report Type: 
  Country: None (occurrence: None)
  Receive Date: 20080315
  Receipt Date: 20080104
  Transmission Date: 20080703
  Serious: No
  Sender: FDA-Public Use
  Company Number: US-ABBOTT-08P-163-0432617-00

PATIENT
  Sex: Female
  Weight: 70.37 kg

DRUGS (7)
  1. HUMIRA [Suspect]
     Indication: CROHN'S DISEASE
     Route: 058
     Dates: start: 20080103
  2. HUMIRA [Suspect]
     Route: 058
     Dates: start: 20071206, end: 20071206
  3. HUMIRA [Suspect]
     Route: 058
     Dates: start: 20071220, end: 20071220
  4. CALCIUM [Concomitant]
     Indication: MINERAL SUPPLEMENTATION
     Route: 048
  5. MOMOPRIL [Concomitant]
     Indication: HYPERTENSION
     Route: 048
  6. PHENERGAN HCL [Concomitant]
     Indication: NAUSEA
     Route: 048
  7. FOLIC ACID [Concomitant]
     Indication: RHEUMATOID ARTHRITIS
     Route: 048

REACTIONS (1)
  - INJECTION SITE BRUISING [None]
